FAERS Safety Report 15254653 (Version 1)
Quarter: 2018Q3

REPORT INFORMATION
  Report Type: Spontaneous
  Country: US (occurrence: US)
  Receive Date: 20180717
  Receipt Date: 20180717
  Transmission Date: 20181010
  Serious: Yes (Hospitalization, Disabling)
  Sender: FDA-Public Use
  Company Number: None

PATIENT
  Age: 75 Year
  Sex: Female
  Weight: 85.5 kg

DRUGS (4)
  1. WELLBUTRIN [Concomitant]
     Active Substance: BUPROPION HYDROCHLORIDE
  2. AMLODOPINE [Concomitant]
     Active Substance: AMLODIPINE BESYLATE
  3. NALTREXONE 4.5MG [Suspect]
     Active Substance: NALTREXONE
     Indication: FIBROMYALGIA
     Dosage: ?          QUANTITY:1 TABLET(S);?
     Route: 048
     Dates: start: 20180709, end: 20180709
  4. CYMBALTA [Concomitant]
     Active Substance: DULOXETINE HYDROCHLORIDE

REACTIONS (3)
  - Akathisia [None]
  - Blood pressure increased [None]
  - Product formulation issue [None]

NARRATIVE: CASE EVENT DATE: 20180709
